FAERS Safety Report 21510430 (Version 1)
Quarter: 2022Q4

REPORT INFORMATION
  Report Type: Report from Study
  Country: US (occurrence: US)
  Receive Date: 20221026
  Receipt Date: 20221026
  Transmission Date: 20230112
  Serious: Yes (Hospitalization)
  Sender: FDA-Public Use
  Company Number: US-JAZZ-2022-US-023970

PATIENT
  Sex: Female

DRUGS (31)
  1. XYREM [Suspect]
     Active Substance: SODIUM OXYBATE
     Indication: Narcolepsy
     Dosage: 2.75 GRAM, BID
     Route: 048
  2. XYREM [Suspect]
     Active Substance: SODIUM OXYBATE
     Indication: Cataplexy
  3. XYREM [Suspect]
     Active Substance: SODIUM OXYBATE
     Indication: Somnolence
  4. PAXLOVID [Suspect]
     Active Substance: NIRMATRELVIR\RITONAVIR
     Indication: Product used for unknown indication
     Dosage: UNK
  5. NASONEX [Concomitant]
     Active Substance: MOMETASONE FUROATE
     Indication: Product used for unknown indication
     Dosage: 0000
     Dates: start: 20151019
  6. GLYCOLAX [Concomitant]
     Active Substance: POLYETHYLENE GLYCOL 3350
     Indication: Product used for unknown indication
     Dosage: 0000
     Dates: start: 20151019
  7. CYMBALTA [Concomitant]
     Active Substance: DULOXETINE HYDROCHLORIDE
     Indication: Product used for unknown indication
     Dosage: UNK, QD
     Dates: start: 20151019
  8. PROPRANOLOL [Concomitant]
     Active Substance: PROPRANOLOL HYDROCHLORIDE
     Indication: Product used for unknown indication
     Dosage: 0010 OTH
     Dates: start: 20151019
  9. ESTRACE [Concomitant]
     Active Substance: ESTRADIOL
     Indication: Product used for unknown indication
     Dosage: 0000
     Dates: start: 20151019
  10. CLAVULANATE POTASSIUM [Concomitant]
     Active Substance: CLAVULANATE POTASSIUM
     Indication: Product used for unknown indication
     Dosage: OTH
     Dates: start: 20151019
  11. HYDROXYZINE HYDROCHLORIDE [Concomitant]
     Active Substance: HYDROXYZINE HYDROCHLORIDE
     Indication: Product used for unknown indication
     Dosage: OTH
     Dates: start: 20151019
  12. JUBLIA [Concomitant]
     Active Substance: EFINACONAZOLE
     Indication: Product used for unknown indication
     Dosage: 0000
     Dates: start: 20151019
  13. CALCIUM CITRATE\CHOLECALCIFEROL [Concomitant]
     Active Substance: CALCIUM CITRATE\CHOLECALCIFEROL
     Indication: Product used for unknown indication
     Dosage: CAPLET
     Dates: start: 20151019
  14. GLUCOSAMIN + CHONDROITIN [Concomitant]
     Indication: Product used for unknown indication
     Dosage: 0000
     Dates: start: 20151019
  15. MAGNESIUM MALATE [Concomitant]
     Active Substance: MAGNESIUM MALATE
     Indication: Product used for unknown indication
     Dosage: 0000
     Dates: start: 20151019
  16. ASPIRIN [Concomitant]
     Active Substance: ASPIRIN
     Indication: Product used for unknown indication
     Dosage: 0000
     Dates: start: 20151019
  17. CHOLECALCIFEROL [Concomitant]
     Active Substance: CHOLECALCIFEROL
     Indication: Product used for unknown indication
     Dosage: OTH
     Dates: start: 20151019
  18. FISH OIL [Concomitant]
     Active Substance: FISH OIL
     Indication: Product used for unknown indication
     Dosage: 0000
     Dates: start: 20151019
  19. INOSITOL [Concomitant]
     Active Substance: INOSITOL
     Indication: Product used for unknown indication
     Dosage: 0000
     Dates: start: 20151019
  20. BITTERSALZ [Concomitant]
     Indication: Product used for unknown indication
     Dosage: 0000
     Dates: start: 20151019
  21. ORGANIC ASHWAGHANDA POWDER [Concomitant]
     Indication: Product used for unknown indication
     Dosage: 0000
     Dates: start: 20151019
  22. LICORICE EXTRACT [GLYCYRRHIZA GLABRA ROOT EXTRACT] [Concomitant]
     Indication: Product used for unknown indication
     Dosage: 0000
     Dates: start: 20151019
  23. WILD YAM PLUS [DIOSCOREA VILLOSA EXTRACT] [Concomitant]
     Indication: Product used for unknown indication
     Dosage: 0000
     Dates: start: 20151019
  24. TURMERIC [CURCUMA LONGA ROOT] [Concomitant]
     Indication: Product used for unknown indication
     Dosage: 0000
     Dates: start: 20151019
  25. GLYCERIN [Concomitant]
     Active Substance: GLYCERIN
     Indication: Product used for unknown indication
     Dosage: 0000
     Dates: start: 20151019
  26. GINSENG EXTRACT [PANAX GINSENG ROOT] [Concomitant]
     Indication: Product used for unknown indication
     Dosage: 0000
     Dates: start: 20151019
  27. ALCOHOL [Concomitant]
     Active Substance: ALCOHOL
     Indication: Product used for unknown indication
     Dosage: 0000
     Dates: start: 20151019
  28. RANITIDINE [Concomitant]
     Active Substance: RANITIDINE
     Indication: Product used for unknown indication
     Dosage: 0000
     Dates: start: 20160422
  29. METRONIDAZOLE [Concomitant]
     Active Substance: METRONIDAZOLE
     Indication: Product used for unknown indication
     Dosage: 0000
     Dates: start: 20190706
  30. PAROXETINE HYDROCHLORIDE [Concomitant]
     Active Substance: PAROXETINE HYDROCHLORIDE
     Indication: Product used for unknown indication
     Dosage: 0000
     Dates: start: 20200903
  31. AMLODIPINE BESYLATE [Concomitant]
     Active Substance: AMLODIPINE BESYLATE
     Indication: Product used for unknown indication
     Dosage: 0000
     Dates: start: 20200903

REACTIONS (10)
  - Palpitations [Unknown]
  - Diverticulum [Unknown]
  - Temporomandibular joint syndrome [Unknown]
  - Tinnitus [Unknown]
  - Food allergy [Unknown]
  - Vertigo [Unknown]
  - Affective disorder [Unknown]
  - Gastrooesophageal reflux disease [Unknown]
  - Anxiety [Unknown]
  - COVID-19 [Unknown]
